FAERS Safety Report 21101234 (Version 1)
Quarter: 2022Q3

REPORT INFORMATION
  Report Type: Spontaneous
  Country: US (occurrence: None)
  Receive Date: 20220719
  Receipt Date: 20220719
  Transmission Date: 20221026
  Serious: Yes (Disabling)
  Sender: FDA-Public Use
  Company Number: None

PATIENT
  Age: 56 Year
  Sex: Female
  Weight: 69.75 kg

DRUGS (4)
  1. CITROMA MAGNESIUM CITRATE [Suspect]
     Active Substance: MAGNESIUM CITRATE
     Indication: Colonoscopy
     Dosage: OTHER QUANTITY : 10 OUNCE(S);?OTHER FREQUENCY : COLONOSCOPY PREP;?
     Route: 048
     Dates: start: 20211117, end: 20211117
  2. 2,000 iu Vitamin D3 [Concomitant]
  3. 1  gram fish oil [Concomitant]
  4. 1/2 multivitamin [Concomitant]

REACTIONS (5)
  - Chills [None]
  - Abdominal pain upper [None]
  - Dizziness [None]
  - Nausea [None]
  - Post viral fatigue syndrome [None]

NARRATIVE: CASE EVENT DATE: 20211118
